FAERS Safety Report 20016229 (Version 1)
Quarter: 2021Q4

REPORT INFORMATION
  Report Type: Spontaneous
  Country: US (occurrence: None)
  Receive Date: 20211103
  Receipt Date: 20211103
  Transmission Date: 20220303
  Serious: Yes (Life-Threatening)
  Sender: FDA-Public Use
  Company Number: None

PATIENT
  Age: 74 Year
  Sex: Male
  Weight: 105 kg

DRUGS (2)
  1. CEFTRIAXONE SODIUM [Suspect]
     Active Substance: CEFTRIAXONE SODIUM
     Indication: Infection
     Dosage: FREQUENCY : ONCE;?
     Route: 042
     Dates: start: 20210331, end: 20210331
  2. VANCOMYCIN [Suspect]
     Active Substance: VANCOMYCIN
     Indication: Infection
     Dosage: FREQUENCY : ONCE;?
     Route: 042
     Dates: start: 20210331, end: 20210331

REACTIONS (6)
  - Hypoglycaemia [None]
  - Subdural haemorrhage [None]
  - Urinary tract infection [None]
  - Angioedema [None]
  - Anaphylactic reaction [None]
  - Hypertension [None]

NARRATIVE: CASE EVENT DATE: 20210331
